FAERS Safety Report 11351557 (Version 2)
Quarter: 2015Q3

REPORT INFORMATION
  Report Type: Spontaneous
  Country: US (occurrence: US)
  Receive Date: 20150807
  Receipt Date: 20150915
  Transmission Date: 20151125
  Serious: No
  Sender: FDA-Public Use
  Company Number: US-JNJFOC-20150701075

PATIENT
  Age: 41 Year
  Sex: Female
  Weight: 61.24 kg

DRUGS (5)
  1. APPLE CIDER VINEGAR (DIETARY SUPPLEMENT) [Concomitant]
     Indication: WEIGHT DECREASED
     Dosage: USING SINCE 1 AND HALF YEARS.
     Route: 065
  2. MULTIVITAMINS [Concomitant]
     Active Substance: VITAMINS
     Indication: ROUTINE HEALTH MAINTENANCE
     Dosage: USING SINCE MANY YEARS
     Route: 065
  3. WOMENS ROGAINE UNSCENTED [Suspect]
     Active Substance: MINOXIDIL
     Indication: ALOPECIA
     Dosage: A DIME SIZE AMOUNT IN 6 SPOTS
     Route: 061
     Dates: start: 201501, end: 201504
  4. APPLE CIDER VINEGAR (DIETARY SUPPLEMENT) [Concomitant]
     Indication: ANTICOAGULANT THERAPY
     Dosage: USING SINCE 1 AND HALF YEARS.
     Route: 065
  5. WOMENS ROGAINE UNSCENTED [Suspect]
     Active Substance: MINOXIDIL
     Route: 061

REACTIONS (1)
  - Wrong technique in product usage process [Unknown]
